FAERS Safety Report 17721665 (Version 4)
Quarter: 2021Q4

REPORT INFORMATION
  Report Type: Report from Study
  Country: ES (occurrence: None)
  Receive Date: 20200429
  Receipt Date: 20211208
  Transmission Date: 20220303
  Serious: Yes (Hospitalization)
  Sender: FDA-Public Use
  Company Number: ES-ROCHE-2567784

PATIENT
  Age: 75 Year
  Sex: Male
  Weight: 62.5 kg

DRUGS (13)
  1. INVESTIGATIONAL PRODUCT [Suspect]
     Active Substance: INVESTIGATIONAL PRODUCT
     Indication: Neoplasm
     Dosage: DATE OF MOST RECENT DOSE OF RO7122290 PRIOR TO AE/SAE ONSET 30/DEC/2019 (260 MG) AT 11:59?START DATE
     Route: 042
     Dates: start: 20190801
  2. ATEZOLIZUMAB [Suspect]
     Active Substance: ATEZOLIZUMAB
     Indication: Neoplasm
     Dosage: START DATE OF MOST RECENT DOSE OF ATEZOLIZUMAB PRIOR TO AE ON 09/MAR/2020 (270 ML): 1200MG (1:19PM)
     Route: 042
     Dates: start: 20190819
  3. ALLOPURINOL [Concomitant]
     Active Substance: ALLOPURINOL
     Indication: Hyperuricaemia
  4. PANTOPRAZOLE [Concomitant]
     Active Substance: PANTOPRAZOLE
     Indication: Gastrointestinal disorder prophylaxis
     Dates: start: 20200131
  5. HIBOR [Concomitant]
     Indication: Thrombosis prophylaxis
     Dates: start: 20200317, end: 20200328
  6. SULFAMETHOXAZOLE\TRIMETHOPRIM [Concomitant]
     Active Substance: SULFAMETHOXAZOLE\TRIMETHOPRIM
     Indication: Prophylaxis urinary tract infection
     Dates: start: 20200318
  7. CALCIUM POLYSTYRENE SULFONATE [Concomitant]
     Active Substance: CALCIUM POLYSTYRENE SULFONATE
     Indication: Chronic kidney disease
     Dates: start: 20200326, end: 20200331
  8. CALCIFEDIOL [Concomitant]
     Active Substance: CALCIFEDIOL
     Indication: Chronic kidney disease
     Dates: start: 20200401
  9. CEFAZOLIN SODIUM [Concomitant]
     Active Substance: CEFAZOLIN SODIUM
     Indication: Infection prophylaxis
     Dates: start: 20200331, end: 20200331
  10. NOREPINEPHRINE [Concomitant]
     Active Substance: NOREPINEPHRINE
     Indication: Hypotension
     Dosage: 3 ML/H
     Dates: start: 20200311, end: 20200311
  11. CEFUROXIMA [Concomitant]
     Indication: Urinary tract infection
     Dates: start: 20200313, end: 20200315
  12. ALBUMIN HUMAN [Concomitant]
     Active Substance: ALBUMIN HUMAN
     Indication: Hypoalbuminaemia
     Dates: start: 20200317
  13. ALLOPURINOL [Concomitant]
     Active Substance: ALLOPURINOL
     Indication: Hyperuricaemia

REACTIONS (2)
  - Pyrexia [Recovered/Resolved]
  - Oedema peripheral [Recovered/Resolved]

NARRATIVE: CASE EVENT DATE: 20200310
